FAERS Safety Report 6613291-3 (Version None)
Quarter: 2010Q1

REPORT INFORMATION
  Report Type: 
  Country: None (occurrence: None)
  Receive Date: 20100304
  Receipt Date: 20100301
  Transmission Date: 20100710
  Serious: Yes (Hospitalization, Other)
  Sender: FDA-Public Use
  Company Number: ES-BRISTOL-MYERS SQUIBB COMPANY-14994818

PATIENT
  Sex: Female
  Weight: 80 kg

DRUGS (1)
  1. ABILIFY [Suspect]
     Dosage: DRUG INTERRUPTED AND RESTARTED AT THE SAME DOSE

REACTIONS (3)
  - ABORTION SPONTANEOUS [None]
  - PREGNANCY [None]
  - PULMONARY EMBOLISM [None]
